FAERS Safety Report 6637015-9 (Version None)
Quarter: 2010Q1

REPORT INFORMATION
  Report Type: 
  Country: None (occurrence: None)
  Receive Date: 20100301
  Receipt Date: 20091216
  Transmission Date: 20100710
  Serious: Yes (Life-Threatening)
  Sender: FDA-Public Use
  Company Number: WAES 0912USA02145

PATIENT
  Age: 45 Year
  Sex: Female

DRUGS (3)
  1. INJ IVEMEND UNK [Suspect]
     Indication: CHEMOTHERAPY
     Dosage: 115 MG/1X/INJ
     Dates: start: 20091124, end: 20091124
  2. INJ IVEMEND UNK [Suspect]
     Indication: PROPHYLAXIS
     Dosage: 115 MG/1X/INJ
     Dates: start: 20091124, end: 20091124
  3. LOVENOX [Concomitant]

REACTIONS (2)
  - DRUG HYPERSENSITIVITY [None]
  - DYSPNOEA [None]
